FAERS Safety Report 8210168-7 (Version None)
Quarter: 2012Q1

REPORT INFORMATION
  Report Type: 
  Country: None (occurrence: None)
  Receive Date: 20120314
  Receipt Date: 20111212
  Transmission Date: 20120608
  Serious: No
  Sender: FDA-Public Use
  Company Number: US-ASTRAZENECA-2010SE35268

PATIENT
  Age: 56 Year
  Sex: Female

DRUGS (2)
  1. TOPROL-XL [Suspect]
     Route: 048
  2. CELEBREX [Concomitant]

REACTIONS (8)
  - DRUG INEFFECTIVE [None]
  - HEAD INJURY [None]
  - HEADACHE [None]
  - MEMORY IMPAIRMENT [None]
  - MALAISE [None]
  - DIARRHOEA [None]
  - ABDOMINAL DISCOMFORT [None]
  - CONCUSSION [None]
